FAERS Safety Report 23475431 (Version 1)
Quarter: 2024Q1

REPORT INFORMATION
  Report Type: Report from Study
  Country: US (occurrence: US)
  Receive Date: 20240204
  Receipt Date: 20240204
  Transmission Date: 20240410
  Serious: No
  Sender: FDA-Public Use
  Company Number: US-EXELIXIS-CABO-22059362

PATIENT
  Sex: Male

DRUGS (2)
  1. CABOMETYX [Suspect]
     Active Substance: CABOZANTINIB S-MALATE
     Indication: Thyroid cancer
     Dosage: 60 MG, QD
     Dates: start: 20221212, end: 20230105
  2. CABOMETYX [Suspect]
     Active Substance: CABOZANTINIB S-MALATE
     Dosage: 20 MG
     Dates: start: 20230222

REACTIONS (10)
  - Malaise [Unknown]
  - Abdominal pain [Unknown]
  - Diarrhoea [Unknown]
  - Stomatitis [Unknown]
  - Nausea [Unknown]
  - Constipation [Unknown]
  - Dizziness [Unknown]
  - Vomiting [Unknown]
  - Dysphonia [Unknown]
  - Weight decreased [Unknown]
